FAERS Safety Report 17839698 (Version 1)
Quarter: 2020Q2

REPORT INFORMATION
  Report Type: Spontaneous
  Country: US (occurrence: US)
  Receive Date: 20200529
  Receipt Date: 20200529
  Transmission Date: 20200714
  Serious: Yes (Other)
  Sender: FDA-Public Use
  Company Number: US-CIPLA LTD.-2020US03550

PATIENT

DRUGS (2)
  1. WARFARIN [Suspect]
     Active Substance: WARFARIN
     Indication: ANTICOAGULANT THERAPY
     Dosage: UNK
     Route: 065
  2. ASPIRIN [ACETYLSALICYLIC ACID] [Concomitant]
     Active Substance: ASPIRIN
     Indication: ANTIPLATELET THERAPY
     Dosage: UNK, 325 MG OR 81 MG DAILY
     Route: 065

REACTIONS (5)
  - Treatment noncompliance [Unknown]
  - Treatment failure [Unknown]
  - Medical device site thrombosis [Unknown]
  - Anticoagulation drug level above therapeutic [Unknown]
  - Thrombosis [Unknown]
